FAERS Safety Report 20937580 (Version 1)
Quarter: 2022Q2

REPORT INFORMATION
  Report Type: Spontaneous
  Country: JP (occurrence: None)
  Receive Date: 20220609
  Receipt Date: 20220609
  Transmission Date: 20220720
  Serious: Yes (Hospitalization, Other)
  Sender: FDA-Public Use
  Company Number: JP-Orion Corporation ORION PHARMA-ENTC2022-0112

PATIENT
  Age: 83 Year
  Sex: Female

DRUGS (1)
  1. STALEVO [Suspect]
     Active Substance: CARBIDOPA\ENTACAPONE\LEVODOPA
     Indication: Parkinson^s disease
     Route: 048

REACTIONS (3)
  - Subarachnoid haemorrhage [Unknown]
  - Fall [Unknown]
  - Dehydration [Unknown]

NARRATIVE: CASE EVENT DATE: 20220517
